FAERS Safety Report 17816207 (Version 1)
Quarter: 2020Q2

REPORT INFORMATION
  Report Type: Spontaneous
  Country: US (occurrence: US)
  Receive Date: 20200522
  Receipt Date: 20200522
  Transmission Date: 20200714
  Serious: Yes (Death)
  Sender: FDA-Public Use
  Company Number: None

PATIENT
  Age: 75 Year
  Sex: Male
  Weight: 79.6 kg

DRUGS (15)
  1. ZINC SULFATE. [Concomitant]
     Active Substance: ZINC SULFATE
     Dates: start: 20200504, end: 20200519
  2. REMDESIVIR. [Suspect]
     Active Substance: REMDESIVIR
     Indication: COVID-19
     Route: 042
     Dates: start: 20200510, end: 20200514
  3. ASCORBIC ACID. [Concomitant]
     Active Substance: ASCORBIC ACID
     Dates: start: 20200504, end: 20200519
  4. FOLIC ACID. [Concomitant]
     Active Substance: FOLIC ACID
     Dates: start: 20200503, end: 20200519
  5. ACETAMINOPHEN. [Concomitant]
     Active Substance: ACETAMINOPHEN
     Dates: start: 20200504, end: 20200519
  6. RIVAROXABAN [Concomitant]
     Active Substance: RIVAROXABAN
     Dates: start: 20200503, end: 20200519
  7. RISPERIDONE. [Concomitant]
     Active Substance: RISPERIDONE
     Dates: start: 20200504, end: 20200519
  8. METOPROLOL. [Concomitant]
     Active Substance: METOPROLOL
     Dates: start: 20200510, end: 20200511
  9. ALBUTEROL 2 MG/5ML SYRUP [Concomitant]
     Dates: start: 20200506, end: 20200519
  10. CHOLECALCIFEROL [Concomitant]
     Active Substance: CHOLECALCIFEROL
     Dates: start: 20200504, end: 20200519
  11. PANTOPRAZOLE [Concomitant]
     Active Substance: PANTOPRAZOLE
     Dates: start: 20200503, end: 20200519
  12. MIRTAZIPINE [Concomitant]
     Active Substance: MIRTAZAPINE
     Dates: start: 20200503, end: 20200519
  13. TRAZODONE [Concomitant]
     Active Substance: TRAZODONE HYDROCHLORIDE
     Dates: start: 20200503, end: 20200519
  14. RISPERIDONE. [Concomitant]
     Active Substance: RISPERIDONE
     Dates: start: 20200503, end: 20200519
  15. ROSUVASTATIN. [Concomitant]
     Active Substance: ROSUVASTATIN
     Dates: start: 20200503, end: 20200519

REACTIONS (2)
  - Condition aggravated [None]
  - COVID-19 [None]

NARRATIVE: CASE EVENT DATE: 20200519
